FAERS Safety Report 6243682-4 (Version None)
Quarter: 2009Q2

REPORT INFORMATION
  Report Type: 
  Country: None (occurrence: None)
  Receive Date: 20090624
  Receipt Date: 20090615
  Transmission Date: 20091009
  Serious: Yes (Hospitalization)
  Sender: FDA-Public Use
  Company Number: US-MYLANLABS-2009S1010638

PATIENT
  Age: 37 Year
  Sex: Male
  Weight: 72.58 kg

DRUGS (4)
  1. LEVETIRACETAM [Suspect]
     Indication: CONVULSION PROPHYLAXIS
     Route: 048
     Dates: start: 20081201
  2. LEVETIRACETAM [Suspect]
     Indication: GRAND MAL CONVULSION
     Route: 048
     Dates: start: 20081201
  3. OXCARBAZEPINE [Suspect]
     Indication: CONVULSION PROPHYLAXIS
     Route: 048
     Dates: start: 20080601
  4. OXCARBAZEPINE [Suspect]
     Indication: GRAND MAL CONVULSION
     Route: 048
     Dates: start: 20080601

REACTIONS (4)
  - AGGRESSION [None]
  - COORDINATION ABNORMAL [None]
  - DISORIENTATION [None]
  - GRAND MAL CONVULSION [None]
